FAERS Safety Report 8926106 (Version 2)
Quarter: 2012Q4

REPORT INFORMATION
  Report Type: 
  Country: JP (occurrence: JP)
  Receive Date: 20121127
  Receipt Date: 20121224
  Transmission Date: 20130627
  Serious: Yes (Hospitalization)
  Sender: FDA-Public Use
  Company Number: JP-009507513-1211JPN009518

PATIENT
  Age: 65 Year
  Sex: Female
  Weight: 54.9 kg

DRUGS (7)
  1. GASTER [Suspect]
     Indication: POSTOPERATIVE CARE
     Dosage: 10 mg, bid
     Route: 048
     Dates: start: 20120819, end: 20120829
  2. CELECOX [Suspect]
     Indication: PAIN MANAGEMENT
     Dosage: 100 mg, bid
     Route: 048
     Dates: start: 20120818, end: 20120829
  3. MERISLON [Concomitant]
     Indication: POSTOPERATIVE CARE
     Dosage: UNK
     Route: 048
     Dates: start: 20120818
  4. METHYCOBAL [Concomitant]
     Indication: POSTOPERATIVE CARE
     Dosage: UNK
     Route: 048
     Dates: start: 20120818
  5. PREDONINE [Concomitant]
     Indication: POSTOPERATIVE CARE
     Dosage: UNK
     Dates: start: 20120819
  6. ULTIVA [Concomitant]
     Indication: ANAESTHESIA
     Dosage: UNK
     Dates: start: 20120814, end: 20120814
  7. PROPOFOL [Concomitant]
     Indication: ANAESTHESIA
     Dosage: UNK
     Dates: start: 20120814, end: 20120814

REACTIONS (2)
  - Drug eruption [Recovered/Resolved]
  - Intentional drug misuse [Unknown]
